FAERS Safety Report 7187163-2 (Version None)
Quarter: 2010Q4

REPORT INFORMATION
  Report Type: 
  Country: None (occurrence: None)
  Receive Date: 20101222
  Receipt Date: 20101216
  Transmission Date: 20110411
  Serious: Yes (Hospitalization, Other)
  Sender: FDA-Public Use
  Company Number: BR-MEDIMMUNE-MEDI-0011504

PATIENT
  Sex: Female
  Weight: 4.7 kg

DRUGS (1)
  1. SYNAGIS [Suspect]
     Indication: CARDIAC DISORDER
     Route: 030
     Dates: start: 20100601

REACTIONS (7)
  - ASPIRATION [None]
  - ATELECTASIS [None]
  - BRONCHOPNEUMONIA [None]
  - CARDIAC MURMUR [None]
  - COLLAPSE OF LUNG [None]
  - COUGH [None]
  - CRYING [None]
